FAERS Safety Report 8608725 (Version 3)
Quarter: 2012Q4

REPORT INFORMATION
  Report Type: Report from Study
  Country: US (occurrence: US)
  Receive Date: 20120611
  Receipt Date: 20120907
  Transmission Date: 20130627
  Serious: Yes (Hospitalization)
  Sender: FDA-Public Use
  Company Number: US-MYLANLABS-2012S1011242

PATIENT
  Age: 54 Year
  Sex: Male
  Weight: 155 kg

DRUGS (5)
  1. HYDROCHLOROTHIAZIDE [Suspect]
     Indication: HYPERTENSION
     Route: 048
     Dates: start: 20120411
  2. GLIPIZIDE [Concomitant]
     Indication: DIABETES MELLITUS
     Dosage: two tablets qam and on qd
     Route: 048
     Dates: start: 201105
  3. METFORMIN [Concomitant]
     Indication: DIABETES MELLITUS
     Route: 048
     Dates: start: 2009
  4. PRAVASTATIN [Concomitant]
     Indication: BLOOD CHOLESTEROL INCREASED
     Route: 048
     Dates: start: 201010
  5. PERCOCET [Concomitant]
     Indication: FRACTURE
     Route: 048
     Dates: start: 201101

REACTIONS (1)
  - Ankle fracture [Recovering/Resolving]
